FAERS Safety Report 21974631 (Version 1)
Quarter: 2023Q1

REPORT INFORMATION
  Report Type: Spontaneous
  Country: US (occurrence: None)
  Receive Date: 20230208
  Receipt Date: 20230208
  Transmission Date: 20230418
  Serious: Yes (Disabling)
  Sender: FDA-Public Use
  Company Number: None

PATIENT
  Age: 36 Year
  Sex: Male
  Weight: 69.75 kg

DRUGS (1)
  1. FINASTERIDE [Suspect]
     Active Substance: FINASTERIDE
     Indication: Androgenetic alopecia
     Dates: start: 20121001, end: 20221115

REACTIONS (6)
  - Loss of libido [None]
  - Erectile dysfunction [None]
  - Dihydrotestosterone decreased [None]
  - Blood testosterone free decreased [None]
  - Progesterone increased [None]
  - Post 5-alpha-reductase inhibitor syndrome [None]

NARRATIVE: CASE EVENT DATE: 20230113
